FAERS Safety Report 6656858-9 (Version None)
Quarter: 2010Q1

REPORT INFORMATION
  Report Type: 
  Country: None (occurrence: None)
  Receive Date: 20100329
  Receipt Date: 20100329
  Transmission Date: 20100710
  Serious: Yes (Other)
  Sender: FDA-Public Use
  Company Number: None

PATIENT
  Sex: Female
  Weight: 52.8 kg

DRUGS (6)
  1. TAXOTERE [Suspect]
     Indication: METASTASES TO CENTRAL NERVOUS SYSTEM
     Dosage: TAXOTERE 110MG EVERY 21 DAYS -1ST OCCLUSIVE DRESSING
     Route: 046
     Dates: start: 20100326, end: 20100326
  2. TAXOTERE [Suspect]
     Indication: NON-SMALL CELL LUNG CANCER STAGE IV
     Dosage: TAXOTERE 110MG EVERY 21 DAYS -1ST OCCLUSIVE DRESSING
     Route: 046
     Dates: start: 20100326, end: 20100326
  3. TAXOTERE [Suspect]
     Indication: COLON CANCER STAGE III
  4. ONDANSETRON [Concomitant]
  5. DEXAMETHASONE [Concomitant]
  6. NORMAL SALINE [Concomitant]

REACTIONS (2)
  - BACK PAIN [None]
  - MUSCULOSKELETAL CHEST PAIN [None]
